FAERS Safety Report 24988320 (Version 1)
Quarter: 2025Q1

REPORT INFORMATION
  Report Type: Spontaneous
  Country: GB (occurrence: GB)
  Receive Date: 20250220
  Receipt Date: 20250220
  Transmission Date: 20250408
  Serious: Yes (Other)
  Sender: DEXCEL
  Company Number: None

PATIENT
  Age: 64 Year
  Sex: Male
  Weight: 85 kg

DRUGS (5)
  1. OMEPRAZOLE [Suspect]
     Active Substance: OMEPRAZOLE
     Indication: Ill-defined disorder
     Dates: start: 20120123
  2. IBUPROFEN [Concomitant]
     Active Substance: IBUPROFEN
     Indication: Ill-defined disorder
     Dates: start: 20241119, end: 20250101
  3. DULOXETINE [Concomitant]
     Active Substance: DULOXETINE
     Indication: Ill-defined disorder
     Dates: start: 20240305
  4. LANTUS [Concomitant]
     Active Substance: INSULIN GLARGINE
     Indication: Ill-defined disorder
     Dates: start: 20200226
  5. NOVORAPID [Concomitant]
     Active Substance: INSULIN ASPART
     Indication: Ill-defined disorder
     Dates: start: 20201006

REACTIONS (1)
  - Haematuria [Recovered/Resolved]

NARRATIVE: CASE EVENT DATE: 20120123
